FAERS Safety Report 8808022 (Version 1)
Quarter: 2012Q4

REPORT INFORMATION
  Report Type: 
  Country: US (occurrence: US)
  Receive Date: 20120925
  Receipt Date: 20120925
  Transmission Date: 20130627
  Serious: Yes (Death, Other)
  Sender: FDA-Public Use
  Company Number: US-ROCHE-1126511

PATIENT
  Sex: Male

DRUGS (4)
  1. AVASTIN [Suspect]
     Indication: MALIGNANT RESPIRATORY TRACT NEOPLASM
     Route: 065
  2. AVASTIN [Suspect]
     Route: 065
     Dates: start: 20050811
  3. AVASTIN [Suspect]
     Route: 065
     Dates: start: 20050907
  4. AVASTIN [Suspect]
     Route: 065
     Dates: start: 20051002

REACTIONS (4)
  - Metastases to spine [Unknown]
  - Metastases to central nervous system [Unknown]
  - Disease progression [Unknown]
  - Death [Fatal]
